FAERS Safety Report 12095451 (Version 1)
Quarter: 2016Q1

REPORT INFORMATION
  Report Type: Spontaneous
  Country: JP (occurrence: JP)
  Receive Date: 20160219
  Receipt Date: 20160219
  Transmission Date: 20160526
  Serious: Yes (Hospitalization)
  Sender: FDA-Public Use
  Company Number: JP-PFIZER INC-2016040986

PATIENT
  Age: 74 Year
  Sex: Female

DRUGS (3)
  1. LEVODOPA/CARBIDOPA [Concomitant]
     Active Substance: CARBIDOPA\LEVODOPA
     Indication: PARKINSON^S DISEASE
     Dosage: 300 MG, DAILY (DIVIDED INTO 3 PRERANDIAL ADMINISTRATIONS)
  2. CABERGOLINE. [Suspect]
     Active Substance: CABERGOLINE
     Indication: PARKINSON^S DISEASE
     Dosage: 3 MG, DAILY
     Dates: start: 2001
  3. CABERGOLINE. [Suspect]
     Active Substance: CABERGOLINE
     Dosage: 4 MG, 1X/DAY
     Dates: start: 2003

REACTIONS (1)
  - Torticollis [Recovering/Resolving]

NARRATIVE: CASE EVENT DATE: 200303
